FAERS Safety Report 5417747-0 (Version None)
Quarter: 2007Q3

REPORT INFORMATION
  Report Type: 
  Country: None (occurrence: None)
  Receive Date: 20070811
  Receipt Date: 20070811
  Transmission Date: 20080115
  Serious: Yes (Hospitalization)
  Sender: FDA-Public Use
  Company Number: None

PATIENT
  Sex: Female
  Weight: 54.4316 kg

DRUGS (14)
  1. FLUOROURACIL [Suspect]
     Indication: PANCREATIC CARCINOMA
     Dosage: (THERAPY DATES: PRIOR TO ADMISSION)
  2. GEMZAR [Suspect]
     Indication: PANCREATIC CARCINOMA
     Dosage: (THERAPY DATES: PRIOR TO ADMISSION)
  3. TARCEVA [Suspect]
     Indication: PANCREATIC CARCINOMA
     Dosage: (THERAPY DATES: PRIOR TO ADMISSION)
  4. PRILOSEC [Concomitant]
  5. SERTRALINE [Concomitant]
  6. REGLAN [Concomitant]
  7. AMBIEN [Concomitant]
  8. COMPAZINE [Concomitant]
  9. ANZEMET [Concomitant]
  10. MEGACE [Concomitant]
  11. ZOFRAN [Concomitant]
  12. CLINAGEL [Concomitant]
  13. LOPRESSOR [Concomitant]
  14. DIOVAN [Concomitant]

REACTIONS (6)
  - ANAEMIA [None]
  - DEHYDRATION [None]
  - DIARRHOEA [None]
  - NAUSEA [None]
  - RENAL FAILURE [None]
  - THROMBOCYTOPENIA [None]
